FAERS Safety Report 6783166-8 (Version None)
Quarter: 2010Q2

REPORT INFORMATION
  Report Type: 
  Country: None (occurrence: None)
  Receive Date: 20100622
  Receipt Date: 20100608
  Transmission Date: 20101027
  Serious: Yes (Death)
  Sender: FDA-Public Use
  Company Number: DE-PFIZER INC-2010076332

PATIENT
  Age: 42 Year
  Sex: Male

DRUGS (2)
  1. ARGATROBAN [Suspect]
     Indication: HEPARIN-INDUCED THROMBOCYTOPENIA
     Dosage: UNK
     Route: 042
     Dates: start: 20100418, end: 20100419
  2. ARTERENOL [Concomitant]
     Dosage: 0.2 - 5 MG/ML, UNK
     Route: 065
     Dates: start: 20100418, end: 20100420

REACTIONS (1)
  - INTESTINAL ISCHAEMIA [None]
